FAERS Safety Report 15529610 (Version 3)
Quarter: 2018Q4

REPORT INFORMATION
  Report Type: Spontaneous
  Country: JP (occurrence: JP)
  Receive Date: 20181018
  Receipt Date: 20181224
  Transmission Date: 20190205
  Serious: Yes (Death, Other)
  Sender: FDA-Public Use
  Company Number: JP-BRISTOL-MYERS SQUIBB COMPANY-BMS-2018-096546

PATIENT
  Age: 63 Year
  Sex: Female
  Weight: 29 kg

DRUGS (2)
  1. E KEPPRA [Suspect]
     Active Substance: LEVETIRACETAM
     Indication: EPILEPSY
     Dosage: 500 MG, BID
     Route: 048
     Dates: start: 20180508, end: 20181010
  2. BARACLUDE [Suspect]
     Active Substance: ENTECAVIR
     Indication: CHRONIC HEPATITIS B
     Dosage: 0.5 MG, QD
     Route: 048
     Dates: start: 20180519, end: 20181009

REACTIONS (3)
  - Septic shock [Fatal]
  - Device related infection [Fatal]
  - Pancytopenia [Fatal]

NARRATIVE: CASE EVENT DATE: 20181005
